FAERS Safety Report 24132910 (Version 1)
Quarter: 2024Q3

REPORT INFORMATION
  Report Type: Spontaneous
  Country: CH (occurrence: CH)
  Receive Date: 20240724
  Receipt Date: 20240724
  Transmission Date: 20241017
  Serious: Yes (Hospitalization)
  Sender: MYLAN
  Company Number: None

PATIENT
  Age: 68 Year
  Sex: Female

DRUGS (10)
  1. ATORVASTATIN [Suspect]
     Active Substance: ATORVASTATIN
     Indication: Product used for unknown indication
     Dosage: 40 MILLIGRAM, QD (40 MG 1X/DAY)
     Route: 065
     Dates: start: 20240313
  2. GEMCITABINE [Suspect]
     Active Substance: GEMCITABINE
     Indication: Adenocarcinoma pancreas
     Dosage: 1600 MILLIGRAM, TOTAL
     Route: 065
     Dates: start: 20240430, end: 20240430
  3. GEMCITABINE [Suspect]
     Active Substance: GEMCITABINE
     Dosage: 1600 MILLIGRAM, TOTAL
     Route: 065
     Dates: start: 20240507, end: 20240507
  4. PACLITAXEL [Suspect]
     Active Substance: PACLITAXEL
     Indication: Adenocarcinoma pancreas
     Dosage: 200 MILLIGRAM, TOTAL
     Route: 065
     Dates: start: 20240430, end: 20240430
  5. PACLITAXEL [Suspect]
     Active Substance: PACLITAXEL
     Dosage: 200 MILLIGRAM, TOTAL
     Route: 065
     Dates: start: 20240507, end: 20240507
  6. DAPAGLIFLOZIN [Suspect]
     Active Substance: DAPAGLIFLOZIN
     Indication: Product used for unknown indication
     Dosage: 10 MILLIGRAM, QD (10 MG 1X/DAY)
     Route: 065
     Dates: start: 20240314
  7. CREON [Concomitant]
     Active Substance: PANCRELIPASE AMYLASE\PANCRELIPASE LIPASE\PANCRELIPASE PROTEASE
     Dosage: 1 DOSAGE FORM, TID
     Route: 065
     Dates: start: 20240311
  8. CETIRIZINE HYDROCHLORIDE [Concomitant]
     Active Substance: CETIRIZINE HYDROCHLORIDE
     Dosage: 10 MILLIGRAM (10 MG AS NEEDED, TAKEN MAINLY AFTER CYCLES OF GEMCITABINE, PACLITAXEL)
     Route: 065
     Dates: start: 20240506
  9. SYMBICORT [Concomitant]
     Active Substance: BUDESONIDE\FORMOTEROL FUMARATE DIHYDRATE
     Dosage: 1 DOSAGE FORM, QD (400/12 MCG 1X/D FOR MORE THAN 2 YEARS)
     Route: 065
  10. ACETAMINOPHEN [Concomitant]
     Active Substance: ACETAMINOPHEN
     Dosage: UNK, (VARIABLE DOSE, MAX. 2 G, LONG-STANDING TREATMENT)
     Route: 065

REACTIONS (2)
  - Oedematous pancreatitis [Recovered/Resolved]
  - Rash maculo-papular [Recovered/Resolved]

NARRATIVE: CASE EVENT DATE: 20240511
